FAERS Safety Report 5455062-X (Version None)
Quarter: 2007Q3

REPORT INFORMATION
  Report Type: 
  Country: None (occurrence: None)
  Receive Date: 20070913
  Receipt Date: 20070823
  Transmission Date: 20080115
  Serious: Yes (Death)
  Sender: FDA-Public Use
  Company Number: 6037407

PATIENT
  Sex: Male

DRUGS (5)
  1. CLARITHROMYCIN [Suspect]
     Indication: MYALGIA
     Dosage: 1000 MG (500 MG, 2 IN 1 D)
  2. CLARITHROMYCIN [Suspect]
     Indication: ODYNOPHAGIA
     Dosage: 1000 MG (500 MG, 2 IN 1 D)
  3. CLARITHROMYCIN [Suspect]
     Indication: PYREXIA
     Dosage: 1000 MG (500 MG, 2 IN 1 D)
  4. DISULFIRAM [Suspect]
     Indication: ALCOHOLISM
     Dosage: 250 MG (250 MG, 1 IN 1 D)
  5. PRACETAMOL (PRACETAMOL) [Concomitant]

REACTIONS (4)
  - DRUG INTERACTION [None]
  - HEPATIC FAILURE [None]
  - SEPTIC SHOCK [None]
  - TOXIC EPIDERMAL NECROLYSIS [None]
